FAERS Safety Report 24679441 (Version 1)
Quarter: 2024Q4

REPORT INFORMATION
  Report Type: Spontaneous
  Country: CN (occurrence: CN)
  Receive Date: 20241129
  Receipt Date: 20241129
  Transmission Date: 20250115
  Serious: Yes (Death)
  Sender: GE HEALTHCARE
  Company Number: CN-GE HEALTHCARE-2024CSU013630

PATIENT
  Age: 68 Year
  Sex: Female
  Weight: 47 kg

DRUGS (5)
  1. OMNIPAQUE [Suspect]
     Active Substance: IOHEXOL
     Indication: Computerised tomogram
     Dosage: 35 GM, TOTAL
     Route: 040
     Dates: start: 20241118, end: 20241118
  2. SODIUM CHLORIDE [Concomitant]
     Active Substance: SODIUM CHLORIDE
     Indication: Vehicle solution use
     Dosage: 20 ML, BID
     Route: 041
     Dates: start: 20241118, end: 20241118
  3. SODIUM CHLORIDE [Concomitant]
     Active Substance: SODIUM CHLORIDE
     Dosage: 100 ML, BID
     Route: 042
     Dates: start: 20241118, end: 20241118
  4. CEFTAZIDIME [Concomitant]
     Active Substance: CEFTAZIDIME
     Indication: Calculus urinary
     Dosage: 2 GM, QD
     Route: 041
     Dates: start: 20241118, end: 20241118
  5. DEXAMETHASONE SODIUM PHOSPHATE [Concomitant]
     Active Substance: DEXAMETHASONE SODIUM PHOSPHATE
     Indication: Allergy prophylaxis
     Dosage: 10 MG, QD
     Route: 042
     Dates: start: 20241118, end: 20241118

REACTIONS (2)
  - Cardiogenic shock [Fatal]
  - Anaphylactic shock [Fatal]

NARRATIVE: CASE EVENT DATE: 20241118
